FAERS Safety Report 20080666 (Version 5)
Quarter: 2023Q2

REPORT INFORMATION
  Report Type: Spontaneous
  Country: PT (occurrence: PT)
  Receive Date: 20211117
  Receipt Date: 20230627
  Transmission Date: 20230721
  Serious: Yes (Hospitalization, Other)
  Sender: FDA-Public Use
  Company Number: PT-DECOMED-2021-0043

PATIENT
  Age: 56 Year
  Sex: Female

DRUGS (5)
  1. SERTRALINE [Interacting]
     Active Substance: SERTRALINE HYDROCHLORIDE
     Indication: Product used for unknown indication
     Dosage: 50 MG, UNSPECIFIED FREQUENCY
     Route: 065
  2. SERTRALINE [Interacting]
     Active Substance: SERTRALINE HYDROCHLORIDE
     Dosage: 25 MILLIGRAM
     Route: 048
  3. QUETIAPINE [Interacting]
     Active Substance: QUETIAPINE
     Indication: Product used for unknown indication
     Dosage: 25 MG, UNSPECIFIED FREQUENCY
     Route: 065
  4. QUETIAPINE [Interacting]
     Active Substance: QUETIAPINE
     Dosage: 50 MILLIGRAM
     Route: 048
  5. PROPANOLOL BOEHRINGER [Concomitant]
     Indication: Product used for unknown indication
     Dosage: 40 MG, UNSPECIFIED FREQUENCY
     Route: 048

REACTIONS (4)
  - Hyponatraemia [Recovered/Resolved]
  - Seizure [Unknown]
  - Hyponatraemic seizure [Unknown]
  - Drug interaction [Unknown]
